FAERS Safety Report 13369580 (Version 1)
Quarter: 2017Q1

REPORT INFORMATION
  Report Type: Spontaneous
  Country: US (occurrence: US)
  Receive Date: 20170324
  Receipt Date: 20170324
  Transmission Date: 20170429
  Serious: No
  Sender: FDA-Public Use
  Company Number: US-ROCHE-1221622

PATIENT
  Age: 70 Year
  Sex: Male
  Weight: 58.57 kg

DRUGS (1)
  1. XOLAIR [Suspect]
     Active Substance: OMALIZUMAB
     Indication: RHINITIS ALLERGIC
     Dosage: EVERY 2 WEEKS
     Route: 058
     Dates: start: 20130215, end: 20130426

REACTIONS (4)
  - Malaise [Not Recovered/Not Resolved]
  - Lower respiratory tract congestion [Unknown]
  - Fatigue [Unknown]
  - Oxygen consumption decreased [Unknown]

NARRATIVE: CASE EVENT DATE: 20130217
